FAERS Safety Report 4455720-X (Version None)
Quarter: 2004Q3

REPORT INFORMATION
  Report Type: 
  Country: None (occurrence: None)
  Receive Date: 20040917
  Receipt Date: 20040913
  Transmission Date: 20050211
  Serious: Yes (Other)
  Sender: FDA-Public Use
  Company Number: DE-JNJFOC-20040903399

PATIENT
  Age: 5 Year
  Sex: Female

DRUGS (1)
  1. IBUPROFEN [Suspect]
     Indication: PYREXIA
     Dosage: 100 MG, ORAL
     Route: 048
     Dates: start: 20040909, end: 20040911

REACTIONS (4)
  - CONFABULATION [None]
  - CRYING [None]
  - DISORIENTATION [None]
  - MUSCLE CRAMP [None]
